FAERS Safety Report 25670019 (Version 1)
Quarter: 2025Q3

REPORT INFORMATION
  Report Type: Spontaneous
  Country: US (occurrence: None)
  Receive Date: 20250811
  Receipt Date: 20250811
  Transmission Date: 20251020
  Serious: Yes (Death)
  Sender: FDA-CTU
  Company Number: None

PATIENT
  Age: 60 Year
  Sex: Female

DRUGS (1)
  1. STIVARGA [Suspect]
     Active Substance: REGORAFENIB MONOHYDRATE
     Indication: Gallbladder cancer
     Dosage: 160 MG DAILY ORAL ?
     Route: 048
     Dates: start: 20250523

REACTIONS (1)
  - Death [None]

NARRATIVE: CASE EVENT DATE: 20250716
